FAERS Safety Report 19268305 (Version 4)
Quarter: 2021Q3

REPORT INFORMATION
  Report Type: Report from Study
  Country: None (occurrence: DE)
  Receive Date: 20210518
  Receipt Date: 20210710
  Transmission Date: 20211014
  Serious: Yes (Hospitalization)
  Sender: FDA-Public Use
  Company Number: DE-ABBVIE-21K-062-3901764-00

PATIENT
  Age: 75 Year
  Sex: Male

DRUGS (3)
  1. PANTOPRAZOL [Concomitant]
     Active Substance: PANTOPRAZOLE SODIUM
     Indication: PRODUCT USED FOR UNKNOWN INDICATION
  2. DUODOPA [Suspect]
     Active Substance: CARBIDOPA\LEVODOPA
     Dosage: MD 11 ML, CRD 4.8 ML/H, CRD 3.0 ML/H ED 1 ML
     Route: 050
     Dates: start: 2021
  3. DUODOPA [Suspect]
     Active Substance: CARBIDOPA\LEVODOPA
     Indication: PARKINSON^S DISEASE
     Dosage: MD 11 ML, CRD 5 ML/H, ED 1 ML
     Route: 050
     Dates: start: 20181025, end: 2021

REACTIONS (4)
  - Femoral neck fracture [Recovering/Resolving]
  - Fall [Recovering/Resolving]
  - Pneumonia [Not Recovered/Not Resolved]
  - Hypokinesia [Not Recovered/Not Resolved]

NARRATIVE: CASE EVENT DATE: 20210510
